FAERS Safety Report 6013028-5 (Version None)
Quarter: 2008Q4

REPORT INFORMATION
  Report Type: 
  Country: None (occurrence: None)
  Receive Date: 20081219
  Receipt Date: 20081209
  Transmission Date: 20090506
  Serious: Yes (Hospitalization)
  Sender: FDA-Public Use
  Company Number: GB-PFIZER INC-2008152837

PATIENT

DRUGS (1)
  1. SOMATROPIN [Suspect]

REACTIONS (2)
  - HIATUS HERNIA [None]
  - MENIERE'S DISEASE [None]
